FAERS Safety Report 20082838 (Version 3)
Quarter: 2021Q4

REPORT INFORMATION
  Report Type: Report from Study
  Country: FR (occurrence: FR)
  Receive Date: 20211117
  Receipt Date: 20211210
  Transmission Date: 20220303
  Serious: Yes (Other)
  Sender: FDA-Public Use
  Company Number: FR-EVEREST MEDICINES II (HK) LIMITED-2021-0556814

PATIENT
  Age: 43 Year
  Sex: Female

DRUGS (9)
  1. SACITUZUMAB GOVITECAN [Suspect]
     Active Substance: SACITUZUMAB GOVITECAN
     Indication: Triple negative breast cancer
     Dosage: 7.5 MG/KG
     Route: 042
     Dates: start: 202107, end: 20210921
  2. SACITUZUMAB GOVITECAN [Suspect]
     Active Substance: SACITUZUMAB GOVITECAN
     Dosage: 10 MG/KG; D1 AND D8
     Route: 065
     Dates: start: 20210705, end: 20210712
  3. XANAX [Concomitant]
     Active Substance: ALPRAZOLAM
  4. SKENAN [Concomitant]
     Active Substance: MORPHINE SULFATE
  5. MORPHINE SULFATE [Concomitant]
     Active Substance: MORPHINE SULFATE
  6. FLORLAX [Concomitant]
  7. FOLIC ACID [Concomitant]
     Active Substance: FOLIC ACID
  8. DOLIPRANE [Concomitant]
     Active Substance: ACETAMINOPHEN
  9. AKYNZEO [Concomitant]
     Active Substance: NETUPITANT\PALONOSETRON HYDROCHLORIDE

REACTIONS (4)
  - Disease progression [Not Recovered/Not Resolved]
  - Neutropenia [Recovered/Resolved]
  - Anaemia [Recovered/Resolved]
  - Thrombocytopenia [Recovered/Resolved]

NARRATIVE: CASE EVENT DATE: 20210712
